FAERS Safety Report 7686082-2 (Version None)
Quarter: 2011Q3

REPORT INFORMATION
  Report Type: 
  Country: None (occurrence: None)
  Receive Date: 20110811
  Receipt Date: 20110803
  Transmission Date: 20111222
  Serious: Yes (Hospitalization)
  Sender: FDA-Public Use
  Company Number: TRP_07871_2011

PATIENT
  Age: 45 Year
  Sex: Male

DRUGS (2)
  1. RIBAVIRIN [Suspect]
     Indication: HEPATITIS C
     Dosage: (1000 MG, PER DAY)
     Dates: start: 20070101, end: 20070101
  2. INTERFERON ALFA [Suspect]
     Indication: HEPATITIS C
     Dosage: (3 MILLION IU 3X/WEEK SUBCUTANEOUS)
     Route: 058
     Dates: start: 20070101, end: 20070101

REACTIONS (18)
  - CONFUSIONAL STATE [None]
  - HAEMOPTYSIS [None]
  - BLOOD GLUCOSE INCREASED [None]
  - BLOOD UREA INCREASED [None]
  - HAEMATOCRIT DECREASED [None]
  - BLOOD POTASSIUM INCREASED [None]
  - HEPATIC STEATOSIS [None]
  - PANCREATITIS ACUTE [None]
  - SOMNOLENCE [None]
  - BLOOD SODIUM DECREASED [None]
  - OXYGEN SATURATION DECREASED [None]
  - PLATELET COUNT DECREASED [None]
  - BLOOD CALCIUM DECREASED [None]
  - MITOCHONDRIAL TOXICITY [None]
  - EPISTAXIS [None]
  - HEPATOSPLENOMEGALY [None]
  - BLOOD ALBUMIN DECREASED [None]
  - PO2 DECREASED [None]
